FAERS Safety Report 24174651 (Version 4)
Quarter: 2025Q2

REPORT INFORMATION
  Report Type: Spontaneous
  Country: US (occurrence: US)
  Receive Date: 20240805
  Receipt Date: 20250425
  Transmission Date: 20250716
  Serious: No
  Sender: PFIZER
  Company Number: US-PFIZER INC-202400227226

PATIENT
  Age: 76 Year
  Sex: Male

DRUGS (1)
  1. XELJANZ XR [Suspect]
     Active Substance: TOFACITINIB CITRATE
     Indication: Arthritis
     Dosage: 11 MG, 1X/DAY
     Route: 048
     Dates: start: 2024

REACTIONS (2)
  - Hypoacusis [Recovering/Resolving]
  - Condition aggravated [Unknown]
